FAERS Safety Report 18553719 (Version 1)
Quarter: 2020Q4

REPORT INFORMATION
  Report Type: Spontaneous
  Country: GB (occurrence: GB)
  Receive Date: 20201127
  Receipt Date: 20201127
  Transmission Date: 20210114
  Serious: Yes (Life-Threatening, Hospitalization)
  Sender: FDA-Public Use
  Company Number: NVSC2020GB316564

PATIENT
  Age: 92 Year
  Sex: Female
  Weight: 47 kg

DRUGS (4)
  1. PHENOXYMETHYLPENICILLIN (= PENICILLIN V) [Suspect]
     Active Substance: PENICILLIN V
     Indication: PRODUCT USED FOR UNKNOWN INDICATION
     Dosage: 125 MG/ML
     Route: 065
     Dates: start: 20201022
  2. NITROFURANTOIN. [Concomitant]
     Active Substance: NITROFURANTOIN
     Indication: PRODUCT USED FOR UNKNOWN INDICATION
     Dosage: 2 UNK, QD (FOR 3 DAYS)
     Route: 065
     Dates: start: 20201022, end: 20201023
  3. CO-DYDRAMOL [Concomitant]
     Active Substance: ACETAMINOPHEN\DIHYDROCODEINE
     Indication: PRODUCT USED FOR UNKNOWN INDICATION
     Dosage: 6 DF, PRN (AS NECESSARY 3 TIMES A DAY)
     Route: 065
     Dates: start: 20191217
  4. LACTULOSE. [Concomitant]
     Active Substance: LACTULOSE
     Indication: PRODUCT USED FOR UNKNOWN INDICATION
     Dosage: 20 ML,QD
     Route: 065
     Dates: start: 20191217

REACTIONS (3)
  - Flushing [Unknown]
  - Swelling face [Recovered/Resolved]
  - Rash [Recovered/Resolved]

NARRATIVE: CASE EVENT DATE: 20201109
